FAERS Safety Report 10177493 (Version 2)
Quarter: 2015Q2

REPORT INFORMATION
  Report Type: Report from Study
  Country: DE (occurrence: DE)
  Receive Date: 20140516
  Receipt Date: 20150512
  Transmission Date: 20150821
  Serious: Yes (Hospitalization)
  Sender: FDA-Public Use
  Company Number: DE-ABBVIE-14P-062-1236518-00

PATIENT
  Age: 64 Year
  Sex: Female

DRUGS (2)
  1. ANTIHYPERTENSIVE DRUG [Concomitant]
     Indication: PRODUCT USED FOR UNKNOWN INDICATION
  2. HUMIRA [Suspect]
     Active Substance: ADALIMUMAB
     Indication: CROHN^S DISEASE
     Route: 058
     Dates: start: 20110607, end: 20140401

REACTIONS (4)
  - Inflammatory marker increased [Recovering/Resolving]
  - Drug specific antibody present [Recovering/Resolving]
  - Asthenia [Not Recovered/Not Resolved]
  - Weight decreased [Not Recovered/Not Resolved]

NARRATIVE: CASE EVENT DATE: 201404
